FAERS Safety Report 9887322 (Version 2)
Quarter: 2017Q3

REPORT INFORMATION
  Report Type: Spontaneous
  Country: PH (occurrence: PH)
  Receive Date: 20140211
  Receipt Date: 20170921
  Transmission Date: 20171128
  Serious: Yes (Hospitalization, Other)
  Sender: FDA-Public Use
  Company Number: PH-009507513-1402PHL003178

PATIENT
  Age: 70 Year
  Sex: Female

DRUGS (1)
  1. JANUMET [Suspect]
     Active Substance: METFORMIN HYDROCHLORIDE\SITAGLIPTIN PHOSPHATE
     Indication: DIABETES MELLITUS
     Dosage: 50/1000 MG (1 TABLET) TWICE A DAY
     Route: 048
     Dates: start: 2011

REACTIONS (3)
  - Hypertension [Unknown]
  - Cellulitis [Recovered/Resolved]
  - Embolism [Recovered/Resolved]
